FAERS Safety Report 5212585-6 (Version None)
Quarter: 2006Q4

REPORT INFORMATION
  Report Type: 
  Country: None (occurrence: None)
  Receive Date: 20061102
  Receipt Date: 20060609
  Transmission Date: 20070319
  Serious: Yes (Other)
  Sender: FDA-Public Use
  Company Number: S06-USA-02428-01

PATIENT
  Age: 61 Year
  Sex: Male

DRUGS (10)
  1. TIAZAC [Suspect]
     Indication: BLOOD PRESSURE
     Dosage: 300 MG QD PO
     Route: 048
     Dates: end: 20060607
  2. TIAZAC [Suspect]
     Indication: BLOOD PRESSURE
     Dosage: 240 MG QD PO
     Route: 048
     Dates: start: 20030101
  3. FUROSEMIDE [Concomitant]
  4. CLONIDINE [Concomitant]
  5. MOEXIPRIL HCL [Concomitant]
  6. SOTALOL HYDROCHLORIDE [Concomitant]
  7. WARFARIN SODIUM [Concomitant]
  8. DIGOXIN [Concomitant]
  9. FOLIC ACID [Concomitant]
  10. DIOVAN [Concomitant]

REACTIONS (2)
  - BLOOD PRESSURE INCREASED [None]
  - DRUG INEFFECTIVE [None]
